FAERS Safety Report 16769289 (Version 1)
Quarter: 2019Q3

REPORT INFORMATION
  Report Type: Spontaneous
  Country: US (occurrence: US)
  Receive Date: 20190903
  Receipt Date: 20190903
  Transmission Date: 20191005
  Serious: Yes (Hospitalization, Other)
  Sender: FDA-Public Use
  Company Number: US-PTC THERAPEUTICS, INC.-US-2019PTC001023

PATIENT
  Sex: Male

DRUGS (2)
  1. EMFLAZA [Suspect]
     Active Substance: DEFLAZACORT
     Dosage: 1.1 ML, UNK
     Route: 048
  2. EMFLAZA [Suspect]
     Active Substance: DEFLAZACORT
     Indication: MUSCULAR DYSTROPHY
     Dosage: 25 MG, QD
     Route: 048
     Dates: start: 20171110, end: 2019

REACTIONS (3)
  - Nasopharyngitis [Recovered/Resolved]
  - Immunosuppression [Unknown]
  - Cough [Unknown]

NARRATIVE: CASE EVENT DATE: 2019
